FAERS Safety Report 16203521 (Version 3)
Quarter: 2019Q3

REPORT INFORMATION
  Report Type: Spontaneous
  Country: US (occurrence: US)
  Receive Date: 20190416
  Receipt Date: 20190808
  Transmission Date: 20191004
  Serious: No
  Sender: FDA-Public Use
  Company Number: US-LEXICON PHARMACEUTICALS, INC-19-1606-00358

PATIENT
  Sex: Male

DRUGS (14)
  1. TELOTRISTAT ETHYL [Suspect]
     Active Substance: TELOTRISTAT ETHYL
     Route: 048
     Dates: start: 201904
  2. CARVEDILOL. [Concomitant]
     Active Substance: CARVEDILOL
  3. NIFEDIPINE. [Concomitant]
     Active Substance: NIFEDIPINE
  4. POTASSIUM CHLORIDE. [Concomitant]
     Active Substance: POTASSIUM CHLORIDE
  5. FUROSEMIDE. [Concomitant]
     Active Substance: FUROSEMIDE
  6. TELOTRISTAT ETHYL [Suspect]
     Active Substance: TELOTRISTAT ETHYL
     Indication: NEUROENDOCRINE TUMOUR
     Route: 048
     Dates: start: 20190204, end: 201904
  7. ALFUZOSIN [Concomitant]
     Active Substance: ALFUZOSIN
  8. FERREX [Concomitant]
     Active Substance: FERRIC POLYSACCHARIDE COMPLEX
  9. ULORIC [Concomitant]
     Active Substance: FEBUXOSTAT
  10. AVAPRO [Concomitant]
     Active Substance: IRBESARTAN
  11. FOSRENOL [Concomitant]
     Active Substance: LANTHANUM CARBONATE
  12. ASPIRIN. [Concomitant]
     Active Substance: ASPIRIN
  13. CLOPIDOGREL BISULFATE. [Concomitant]
     Active Substance: CLOPIDOGREL BISULFATE
  14. ATORVASTATIN [Concomitant]
     Active Substance: ATORVASTATIN

REACTIONS (2)
  - Constipation [Not Recovered/Not Resolved]
  - Insomnia [Unknown]
